FAERS Safety Report 9105360 (Version 2)
Quarter: 2013Q2

REPORT INFORMATION
  Report Type: Spontaneous
  Country: US (occurrence: US)
  Receive Date: 20130220
  Receipt Date: 20130418
  Transmission Date: 20140414
  Serious: Yes (Other)
  Sender: FDA-Public Use
  Company Number: US-NOVOPROD-371136

PATIENT
  Age: 12 Year
  Sex: Female
  Weight: 49.89 kg

DRUGS (1)
  1. NORDITROPIN FLEXPRO 10 MG/ML [Suspect]
     Indication: FAILURE TO THRIVE
     Dosage: 2.1 MG, QD
     Route: 058
     Dates: start: 201212

REACTIONS (3)
  - Pyrexia [Recovered/Resolved]
  - Blood glucose increased [Recovered/Resolved]
  - Heart rate increased [Recovered/Resolved]
